FAERS Safety Report 16841845 (Version 1)
Quarter: 2019Q3

REPORT INFORMATION
  Report Type: Spontaneous
  Country: US (occurrence: US)
  Receive Date: 20190923
  Receipt Date: 20190923
  Transmission Date: 20191005
  Serious: No
  Sender: FDA-Public Use
  Company Number: US-BAUSCH-BL-2019-024701

PATIENT
  Sex: Male

DRUGS (2)
  1. ELIDEL [Suspect]
     Active Substance: PIMECROLIMUS
     Indication: PRODUCT USE IN UNAPPROVED INDICATION
  2. ELIDEL [Suspect]
     Active Substance: PIMECROLIMUS
     Indication: SKIN DISORDER
     Route: 061
     Dates: start: 20180314, end: 201903

REACTIONS (2)
  - Product use in unapproved indication [Unknown]
  - Drug ineffective for unapproved indication [Unknown]

NARRATIVE: CASE EVENT DATE: 20180314
